FAERS Safety Report 11932172 (Version 2)
Quarter: 2017Q1

REPORT INFORMATION
  Report Type: Report from Study
  Country: IT (occurrence: IT)
  Receive Date: 20160120
  Receipt Date: 20170120
  Transmission Date: 20170428
  Serious: Yes (Hospitalization, Other)
  Sender: FDA-Public Use
  Company Number: IT-ASTRAZENECA-2016SE04632

PATIENT
  Age: 81 Year
  Sex: Male

DRUGS (8)
  1. PANTOPRAZOLE [Concomitant]
     Active Substance: PANTOPRAZOLE SODIUM
  2. ASPIRIN. [Suspect]
     Active Substance: ASPIRIN
     Indication: ACUTE CORONARY SYNDROME
     Dosage: NON AZ PRODUCT, MAINTENANCE
     Route: 048
     Dates: start: 20150807, end: 20151024
  3. LISINOPRIL. [Concomitant]
     Active Substance: LISINOPRIL
  4. ASPIRIN. [Suspect]
     Active Substance: ASPIRIN
     Indication: ACUTE CORONARY SYNDROME
     Dosage: NON AZ PRODUCT, MAINTENANCE
     Route: 048
     Dates: end: 20150513
  5. FUROSEMIDE. [Concomitant]
     Active Substance: FUROSEMIDE
  6. TICAGRELOR [Suspect]
     Active Substance: TICAGRELOR
     Indication: ACUTE CORONARY SYNDROME
     Route: 048
     Dates: start: 20150408
  7. ATORVASTATINE [Concomitant]
     Active Substance: ATORVASTATIN
  8. BISOPROLOLE [Concomitant]

REACTIONS (3)
  - Rectal haemorrhage [Recovered/Resolved]
  - Haemorrhage [Recovered/Resolved]
  - Diverticulitis [Recovered/Resolved]

NARRATIVE: CASE EVENT DATE: 20151021
